FAERS Safety Report 20265549 (Version 3)
Quarter: 2022Q1

REPORT INFORMATION
  Report Type: Spontaneous
  Country: DE (occurrence: DE)
  Receive Date: 20211231
  Receipt Date: 20220119
  Transmission Date: 20220423
  Serious: Yes (Other)
  Sender: FDA-Public Use
  Company Number: DE-GE HEALTHCARE-2021CSU005740

PATIENT

DRUGS (17)
  1. IOHEXOL [Suspect]
     Active Substance: IOHEXOL
     Indication: Computerised tomogram thorax
     Dosage: 90 ML, SINGLE
     Route: 042
     Dates: start: 20211115, end: 20211115
  2. IOHEXOL [Suspect]
     Active Substance: IOHEXOL
     Indication: Computerised tomogram abdomen
  3. IOHEXOL [Suspect]
     Active Substance: IOHEXOL
     Indication: Metastatic neoplasm
  4. CARVEDILOL [Concomitant]
     Active Substance: CARVEDILOL
     Dosage: 25 MG, BID
  5. VALSARTAN [Concomitant]
     Active Substance: VALSARTAN
     Dosage: 80 MG, BID
  6. TORSEMIDE [Concomitant]
     Active Substance: TORSEMIDE
     Dosage: 5 MG, QD
  7. IVABRADINE [Concomitant]
     Active Substance: IVABRADINE
     Dosage: 2.5 MG, BID
  8. SODIUM BICARBONATE [Concomitant]
     Active Substance: SODIUM BICARBONATE
     Dosage: UNK, BID
  9. OMEPRAZOLE [Concomitant]
     Active Substance: OMEPRAZOLE
     Dosage: 40 MG, QD
  10. EPLERENONE [Concomitant]
     Active Substance: EPLERENONE
     Dosage: 25 MG, QD
  11. PFIZER-BIONTECH COVID-19 VACCINE [Concomitant]
     Active Substance: TOZINAMERAN
     Dosage: UNK, SINGLE
     Dates: start: 20210419, end: 20210419
  12. PFIZER-BIONTECH COVID-19 VACCINE [Concomitant]
     Active Substance: TOZINAMERAN
     Dosage: UNK, SINGLE
     Dates: start: 20210514, end: 20210514
  13. PFIZER-BIONTECH COVID-19 VACCINE [Concomitant]
     Active Substance: TOZINAMERAN
     Dosage: UNK, SINGLE
     Dates: start: 20211122, end: 20211122
  14. IBUPROFEN [Concomitant]
     Active Substance: IBUPROFEN
     Dosage: 800 MG, PRN
  15. Vivimed [Concomitant]
     Dosage: UNK, PRN
  16. CRANBERRY [Concomitant]
     Active Substance: CRANBERRY
     Dosage: UNK, PRN
  17. MINERALS\VITAMINS [Concomitant]
     Active Substance: MINERALS\VITAMINS
     Dosage: UNK, PRN

REACTIONS (12)
  - Deafness [Unknown]
  - Cardiovascular disorder [Not Recovered/Not Resolved]
  - Vertigo [Not Recovered/Not Resolved]
  - Ophthalmic migraine [Not Recovered/Not Resolved]
  - Ear discomfort [Not Recovered/Not Resolved]
  - Tinnitus [Recovered/Resolved]
  - Photopsia [Recovered/Resolved]
  - Headache [Not Recovered/Not Resolved]
  - Chest discomfort [Unknown]
  - Dysgeusia [Unknown]
  - Nausea [Recovered/Resolved]
  - Discomfort [Recovered/Resolved]

NARRATIVE: CASE EVENT DATE: 20211115
